FAERS Safety Report 4730005-2 (Version None)
Quarter: 2005Q3

REPORT INFORMATION
  Report Type: 
  Country: None (occurrence: None)
  Receive Date: 20050801
  Receipt Date: 20021202
  Transmission Date: 20060218
  Serious: Yes (Death, Hospitalization)
  Sender: FDA-Public Use
  Company Number: PHBS2002CH14799

PATIENT
  Age: 77 Year
  Sex: Female

DRUGS (7)
  1. ZELMAC [Suspect]
     Indication: IRRITABLE BOWEL SYNDROME
     Dosage: 0.5 TABLET BID
     Route: 048
     Dates: start: 20020529
  2. PURSENNID [Concomitant]
  3. ENEMA [Concomitant]
  4. SEROPRAM [Concomitant]
     Dosage: 20 MG, UNK
  5. OXAZEPAM [Concomitant]
     Dosage: 15 MG, UNK
  6. LEXOTANIL [Concomitant]
     Dosage: 1.5 MG, UNK
  7. CALCIMAGON [Concomitant]

REACTIONS (10)
  - ABDOMINAL PAIN [None]
  - BRONCHOPNEUMONIA [None]
  - CARDIAC FAILURE [None]
  - CONFUSIONAL STATE [None]
  - DIARRHOEA [None]
  - DYSPNOEA [None]
  - EPILEPSY [None]
  - HYPERTHERMIA [None]
  - PULMONARY OEDEMA [None]
  - PYREXIA [None]
